FAERS Safety Report 5226447-1 (Version None)
Quarter: 2006Q4

REPORT INFORMATION
  Report Type: 
  Country: None (occurrence: None)
  Receive Date: 20061201
  Receipt Date: 20060927
  Transmission Date: 20070319
  Serious: No
  Sender: FDA-Public Use
  Company Number: US200609007104

PATIENT
  Age: 58 Year
  Sex: Male

DRUGS (3)
  1. CYMBALTA [Suspect]
     Indication: DEPRESSION
     Dosage: 60 MG, DAILY (1/D), UNK
     Dates: start: 20060101
  2. FLONASE [Concomitant]
  3. ZOCOR [Concomitant]

REACTIONS (2)
  - DYSGEUSIA [None]
  - NASAL ODOUR [None]
